FAERS Safety Report 16838157 (Version 1)
Quarter: 2019Q3

REPORT INFORMATION
  Report Type: Spontaneous
  Country: US (occurrence: US)
  Receive Date: 20190923
  Receipt Date: 20190923
  Transmission Date: 20191005
  Serious: No
  Sender: FDA-Public Use
  Company Number: US-TEVA-2019-US-1110749

PATIENT
  Sex: Male

DRUGS (1)
  1. CARBAMAZEPINE TEVA [Suspect]
     Active Substance: CARBAMAZEPINE
     Indication: HEADACHE
     Route: 065

REACTIONS (3)
  - Sneezing [Unknown]
  - Product quality issue [Unknown]
  - Product use in unapproved indication [Unknown]
